FAERS Safety Report 25062947 (Version 2)
Quarter: 2025Q1

REPORT INFORMATION
  Report Type: Spontaneous
  Country: US (occurrence: US)
  Receive Date: 20250311
  Receipt Date: 20250318
  Transmission Date: 20250409
  Serious: Yes (Life-Threatening, Hospitalization, Other)
  Sender: AUROBINDO
  Company Number: US-AUROBINDO-AUR-APL-2025-012760

PATIENT
  Age: 75 Year
  Sex: Male

DRUGS (7)
  1. VANCOMYCIN [Suspect]
     Active Substance: VANCOMYCIN
     Indication: Acinetobacter infection
     Route: 065
  2. VANCOMYCIN [Suspect]
     Active Substance: VANCOMYCIN
     Indication: Staphylococcal infection
  3. POLYMYXIN B [Suspect]
     Active Substance: POLYMYXIN B
     Indication: Acinetobacter infection
     Route: 042
  4. POLYMYXIN B [Suspect]
     Active Substance: POLYMYXIN B
     Indication: Staphylococcal infection
     Dosage: 1.5 MILLION INTERNATIONAL UNIT, TWO TIMES A DAY
     Route: 042
  5. MINOCYCLINE [Suspect]
     Active Substance: MINOCYCLINE HYDROCHLORIDE
     Indication: Acinetobacter infection
     Route: 042
  6. MINOCYCLINE [Suspect]
     Active Substance: MINOCYCLINE HYDROCHLORIDE
     Indication: Staphylococcal infection
     Dosage: 100 MILLIGRAM, TWO TIMES A DAY
     Route: 042
  7. MEROPENEM [Suspect]
     Active Substance: MEROPENEM
     Indication: Product used for unknown indication
     Route: 065

REACTIONS (2)
  - Acute kidney injury [Recovered/Resolved]
  - Renal impairment [Recovered/Resolved]
